FAERS Safety Report 12661675 (Version 1)
Quarter: 2016Q3

REPORT INFORMATION
  Report Type: Spontaneous
  Country: US (occurrence: US)
  Receive Date: 20160817
  Receipt Date: 20160817
  Transmission Date: 20161109
  Serious: No
  Sender: FDA-Public Use
  Company Number: US-PFIZER INC-2016388686

PATIENT
  Age: 45 Year
  Sex: Male

DRUGS (2)
  1. ADVIL [Suspect]
     Active Substance: IBUPROFEN
     Dosage: 200 MG, DAILY, ONE A DAY
     Route: 048
     Dates: start: 20160814
  2. ADVIL [Suspect]
     Active Substance: IBUPROFEN
     Indication: ARTHRALGIA
     Dosage: 200 MG, DAILY, ONE A DAY
     Route: 048
     Dates: start: 201601

REACTIONS (1)
  - Throat irritation [Unknown]
